FAERS Safety Report 17031877 (Version 1)
Quarter: 2019Q4

REPORT INFORMATION
  Report Type: Spontaneous
  Country: FR (occurrence: FR)
  Receive Date: 20191114
  Receipt Date: 20191114
  Transmission Date: 20200122
  Serious: Yes (Hospitalization, Other)
  Sender: FDA-Public Use
  Company Number: FR-MYLANLABS-2019M1101744

PATIENT
  Age: 70 Year
  Sex: Male
  Weight: 68 kg

DRUGS (2)
  1. AMOXICILLIN. [Suspect]
     Active Substance: AMOXICILLIN
     Indication: SKIN INFECTION
     Dosage: 3 GRAM, QD
     Route: 048
     Dates: start: 20190415, end: 20190419
  2. TERBINAFINE. [Suspect]
     Active Substance: TERBINAFINE
     Indication: SKIN INFECTION
     Dosage: NP (UNK)
     Route: 003
     Dates: start: 20190415, end: 20190419

REACTIONS (1)
  - Acute generalised exanthematous pustulosis [Recovered/Resolved]

NARRATIVE: CASE EVENT DATE: 20190417
